FAERS Safety Report 5843077-9 (Version None)
Quarter: 2008Q3

REPORT INFORMATION
  Report Type: 
  Country: None (occurrence: None)
  Receive Date: 20080812
  Receipt Date: 20080812
  Transmission Date: 20090109
  Serious: No
  Sender: FDA-Public Use
  Company Number: None

PATIENT
  Age: 41 Year
  Sex: Female
  Weight: 61.6892 kg

DRUGS (7)
  1. LEVAQUIN [Suspect]
     Indication: SINUSITIS
     Dosage: 7 DAY PO
     Route: 048
     Dates: start: 20080304, end: 20080311
  2. LEVAQUIN [Suspect]
     Indication: SURGERY
     Dosage: 7 DAY PO
     Route: 048
     Dates: start: 20080304, end: 20080311
  3. LEVAQUIN [Suspect]
     Indication: SINUSITIS
     Dosage: 7 DAY PO
     Route: 048
     Dates: start: 20080312
  4. LEVAQUIN [Suspect]
     Indication: SURGERY
     Dosage: 7 DAY PO
     Route: 048
     Dates: start: 20080312
  5. LEVAQUIN [Suspect]
     Indication: SINUSITIS
     Dosage: 7 DAY PO
     Route: 048
     Dates: start: 20080522
  6. LEVAQUIN [Suspect]
     Indication: SURGERY
     Dosage: 7 DAY PO
     Route: 048
     Dates: start: 20080522
  7. CIPROFLOXACIN [Suspect]
     Indication: SINUSITIS
     Dosage: 2/DAY 6 WEEKS  PO
     Route: 048
     Dates: start: 20080328, end: 20080513

REACTIONS (2)
  - ARTHRALGIA [None]
  - HEADACHE [None]
